FAERS Safety Report 13736520 (Version 1)
Quarter: 2017Q3

REPORT INFORMATION
  Report Type: Spontaneous
  Country: US (occurrence: US)
  Receive Date: 20170710
  Receipt Date: 20170710
  Transmission Date: 20171127
  Serious: No
  Sender: FDA-Public Use
  Company Number: US-GLAXOSMITHKLINE-US2017104554

PATIENT
  Age: 56 Year
  Sex: Female

DRUGS (3)
  1. ABREVA [Suspect]
     Active Substance: DOCOSANOL
     Indication: ORAL HERPES
     Dosage: UNK
  2. ABREVA [Suspect]
     Active Substance: DOCOSANOL
     Dosage: UNK
     Dates: start: 20170630, end: 20170705
  3. ABREVA [Suspect]
     Active Substance: DOCOSANOL
     Dosage: UNK

REACTIONS (2)
  - Product quality issue [Unknown]
  - Incorrect drug administration duration [Unknown]
